FAERS Safety Report 5424765-5 (Version None)
Quarter: 2007Q3

REPORT INFORMATION
  Report Type: 
  Country: None (occurrence: None)
  Receive Date: 20070822
  Receipt Date: 20070803
  Transmission Date: 20080115
  Serious: Yes (Disabling)
  Sender: FDA-Public Use
  Company Number: M-07-0634

PATIENT
  Age: 68 Year
  Sex: Male

DRUGS (8)
  1. PACERONE [Suspect]
     Indication: ATRIAL FIBRILLATION
     Dosage: 200 MG, QD, PO
     Route: 048
     Dates: start: 20060801
  2. HYDROCODONE WITH ACETAMINOPHEN [Concomitant]
  3. EFFEXOR [Concomitant]
  4. PREDNISOONE [Concomitant]
  5. ATACAND [Concomitant]
  6. FISH OIL [Concomitant]
  7. VITAMIN B COMPLEX CAP [Concomitant]
  8. OXYGEN [Concomitant]

REACTIONS (5)
  - IMPAIRED WORK ABILITY [None]
  - JOINT RANGE OF MOTION DECREASED [None]
  - MALAISE [None]
  - PERIPHERAL NERVE LESION [None]
  - TREMOR [None]
